FAERS Safety Report 17589028 (Version 12)
Quarter: 2020Q4

REPORT INFORMATION
  Report Type: Spontaneous
  Country: CA (occurrence: CA)
  Receive Date: 20200327
  Receipt Date: 20201230
  Transmission Date: 20210113
  Serious: Yes (Other)
  Sender: FDA-Public Use
  Company Number: CA-CELLTRION INC.-2020CA020960

PATIENT

DRUGS (18)
  1. INFLECTRA [Suspect]
     Active Substance: INFLIXIMAB-DYYB
     Indication: COLITIS ULCERATIVE
     Dosage: UNK
     Route: 042
     Dates: start: 202002, end: 202002
  2. SYNTHROID [Concomitant]
     Active Substance: LEVOTHYROXINE SODIUM
     Dosage: UNK
     Route: 065
  3. INFLECTRA [Suspect]
     Active Substance: INFLIXIMAB-DYYB
     Dosage: UNK
     Route: 042
     Dates: start: 202003, end: 202003
  4. INFLECTRA [Suspect]
     Active Substance: INFLIXIMAB-DYYB
     Dosage: 5 MG/KG, AT UNK 6 WEEKS, THEN EVERY 8 WEEKS
     Route: 042
     Dates: start: 20200408
  5. INFLECTRA [Suspect]
     Active Substance: INFLIXIMAB-DYYB
     Dosage: 5MG/KG EVERY 4 WEEKS
     Route: 042
     Dates: start: 20201221
  6. ARIPIPRAZOLE. [Concomitant]
     Active Substance: ARIPIPRAZOLE
     Dosage: UNK
     Route: 065
  7. INFLECTRA [Suspect]
     Active Substance: INFLIXIMAB-DYYB
     Dosage: 5 MG/KG, AT UNK 6 WEEKS, THEN EVERY 8 WEEKS
     Route: 042
     Dates: start: 20200728
  8. LORAZEPAM. [Concomitant]
     Active Substance: LORAZEPAM
     Dosage: UNK
     Route: 065
  9. JAMP-PANTOPRAZOLE [Concomitant]
     Dosage: UNK
     Route: 065
  10. INFLECTRA [Suspect]
     Active Substance: INFLIXIMAB-DYYB
     Dosage: 5 MG/KG, AT UNK 6 WEEKS, THEN EVERY 8 WEEKS
     Route: 042
     Dates: start: 20200309
  11. INFLECTRA [Suspect]
     Active Substance: INFLIXIMAB-DYYB
     Dosage: 5 MG/KG, AT UNK 6 WEEKS, THEN EVERY 8 WEEKS
     Route: 042
     Dates: start: 20200603
  12. INFLECTRA [Suspect]
     Active Substance: INFLIXIMAB-DYYB
     Dosage: 5 MG/KG, AT UNK 6 WEEKS, THEN EVERY 8 WEEKS
     Route: 042
     Dates: start: 20200924
  13. INFLECTRA [Suspect]
     Active Substance: INFLIXIMAB-DYYB
     Dosage: 5MG/KG EVERY 4 WEEKS
     Route: 042
     Dates: start: 20201119
  14. QUETIAPINE XR [Concomitant]
     Active Substance: QUETIAPINE
     Dosage: UNK
     Route: 065
  15. TRAZODONE [Concomitant]
     Active Substance: TRAZODONE HYDROCHLORIDE
     Dosage: UNK
     Route: 065
  16. ASACOL [Concomitant]
     Active Substance: MESALAMINE
     Dosage: 800 MG, UNK
     Route: 065
  17. PREDNISONE. [Concomitant]
     Active Substance: PREDNISONE
     Dosage: UNK
     Route: 065
  18. CORTISONE [Concomitant]
     Active Substance: CORTISONE
     Dosage: 30 MG, 1X/DAY (DIE) (INCREASED)
     Route: 065

REACTIONS (10)
  - Off label use [Unknown]
  - Loss of consciousness [Unknown]
  - Pyrexia [Unknown]
  - Abdominal tenderness [Unknown]
  - Condition aggravated [Unknown]
  - Abdominal distension [Unknown]
  - Illness [Unknown]
  - Fatigue [Unknown]
  - Drug ineffective [Not Recovered/Not Resolved]
  - Blood pressure diastolic increased [Unknown]

NARRATIVE: CASE EVENT DATE: 2020
